FAERS Safety Report 5270004-8 (Version None)
Quarter: 2007Q1

REPORT INFORMATION
  Report Type: 
  Country: None (occurrence: None)
  Receive Date: 20061213
  Receipt Date: 20030828
  Transmission Date: 20070707
  Serious: Yes (Other)
  Sender: FDA-Public Use
  Company Number: 2003UW10941

PATIENT
  Sex: Female
  Weight: 73.4827 kg

DRUGS (4)
  1. IRESSA [Suspect]
     Indication: NON-SMALL CELL LUNG CANCER
     Dosage: 250 MG DAILY PO
     Route: 048
     Dates: start: 20030517
  2. MEVACOR [Concomitant]
  3. MIACALCIN [Concomitant]
  4. PEPTO-BISMOL [Concomitant]

REACTIONS (2)
  - ABDOMINAL PAIN LOWER [None]
  - FLATULENCE [None]
